FAERS Safety Report 10244120 (Version 2)
Quarter: 2014Q2

REPORT INFORMATION
  Report Type: Spontaneous
  Country: US (occurrence: US)
  Receive Date: 20140618
  Receipt Date: 20140626
  Transmission Date: 20141212
  Serious: Yes (Other)
  Sender: FDA-Public Use
  Company Number: US-BAXTER-2014BAX030184

PATIENT
  Sex: Female
  Weight: 48 kg

DRUGS (2)
  1. GAMMAGARD LIQUID [Suspect]
     Indication: IMMUNODEFICIENCY COMMON VARIABLE
     Route: 058
     Dates: start: 201209
  2. CITALOPRAM [Concomitant]
     Indication: SLEEP DISORDER
     Route: 065

REACTIONS (7)
  - Upper respiratory tract infection [Recovering/Resolving]
  - Sinus operation [Unknown]
  - Secretion discharge [Unknown]
  - Headache [Unknown]
  - Drug dose omission [Recovered/Resolved]
  - Joint stiffness [Recovering/Resolving]
  - Musculoskeletal stiffness [Recovering/Resolving]
